FAERS Safety Report 23610874 (Version 1)
Quarter: 2024Q1

REPORT INFORMATION
  Report Type: Spontaneous
  Country: CN (occurrence: CN)
  Receive Date: 20240308
  Receipt Date: 20240308
  Transmission Date: 20240409
  Serious: Yes (Hospitalization)
  Sender: FDA-Public Use
  Company Number: CN-SA-SAC20240306000136

PATIENT
  Age: 33 Year
  Sex: Female
  Weight: 65 kg

DRUGS (6)
  1. AUBAGIO [Suspect]
     Active Substance: TERIFLUNOMIDE
     Indication: Relapsing multiple sclerosis
     Dosage: 7 MG QD
     Route: 048
     Dates: end: 202206
  2. AUBAGIO [Suspect]
     Active Substance: TERIFLUNOMIDE
     Dosage: 14 MG, QD
     Route: 048
     Dates: start: 202206
  3. METOPROLOL TARTRATE [Concomitant]
     Active Substance: METOPROLOL TARTRATE
     Indication: Heart rate increased
     Dosage: 25 MG, QD
     Route: 048
  4. VITAMIN B1 [Concomitant]
     Active Substance: THIAMINE HYDROCHLORIDE
     Indication: Relapsing multiple sclerosis
     Dosage: UNK, TID
     Route: 048
  5. VITAMIN B6 [Concomitant]
     Active Substance: PYRIDOXINE HYDROCHLORIDE
     Indication: Relapsing multiple sclerosis
     Dosage: UNK, TID
     Route: 048
  6. METHYLCOBALAMIN [Concomitant]
     Active Substance: METHYLCOBALAMIN
     Indication: Relapsing multiple sclerosis
     Dosage: 10 MG, TID
     Route: 048

REACTIONS (3)
  - Gait disturbance [Recovering/Resolving]
  - Hepatic cyst [Unknown]
  - Hepatic mass [Unknown]

NARRATIVE: CASE EVENT DATE: 20220601
